FAERS Safety Report 6665522-1 (Version None)
Quarter: 2010Q2

REPORT INFORMATION
  Report Type: 
  Country: None (occurrence: None)
  Receive Date: 20100402
  Receipt Date: 20100324
  Transmission Date: 20101027
  Serious: Yes (Hospitalization, Other)
  Sender: FDA-Public Use
  Company Number: FR-JNJFOC-20100307449

PATIENT
  Age: 28 Year
  Sex: Male

DRUGS (10)
  1. REMICADE [Suspect]
     Indication: DRUG USE FOR UNKNOWN INDICATION
     Dosage: 8TH COURSE OF TREATMENT
     Route: 042
  2. REMICADE [Suspect]
     Route: 042
  3. CORTANCYL [Concomitant]
  4. CORTANCYL [Concomitant]
  5. METOJECT [Concomitant]
     Route: 042
  6. DIFFU K [Concomitant]
  7. FOSAMAX [Concomitant]
  8. CACIT D3 [Concomitant]
  9. SPECIAFOLDINE [Concomitant]
  10. BACTRIM [Concomitant]

REACTIONS (2)
  - PULMONARY EMBOLISM [None]
  - PULMONARY INFARCTION [None]
